FAERS Safety Report 7733119-8 (Version None)
Quarter: 2011Q3

REPORT INFORMATION
  Report Type: 
  Country: None (occurrence: None)
  Receive Date: 20110901
  Receipt Date: 20110616
  Transmission Date: 20111222
  Serious: No
  Sender: FDA-Public Use
  Company Number: KV201100096

PATIENT
  Age: 28 Year
  Sex: Female

DRUGS (3)
  1. MAKENA [Suspect]
     Indication: PREMATURE DELIVERY
     Dosage: 250 MG, ONCE WEEKLY, INTRAMUSCULAR
     Route: 030
     Dates: start: 20110331
  2. PRENATAL VITAMINS   /01549301/ (ASCORBIC ACID, BIOTIN, MINERALS NOS, N [Concomitant]
  3. IRON (IRON) [Concomitant]

REACTIONS (2)
  - INJECTION SITE NODULE [None]
  - INJECTION SITE PRURITUS [None]
